FAERS Safety Report 7096604-0 (Version None)
Quarter: 2010Q4

REPORT INFORMATION
  Report Type: 
  Country: None (occurrence: None)
  Receive Date: 20101110
  Receipt Date: 20101110
  Transmission Date: 20110411
  Serious: No
  Sender: FDA-Public Use
  Company Number: None

PATIENT
  Age: 46 Year
  Sex: Female
  Weight: 72.5755 kg

DRUGS (1)
  1. BACTRIM [Suspect]
     Indication: URINARY TRACT INFECTION
     Dosage: 1 PILL 2 TIMES PER DAY
     Dates: start: 20101023, end: 20101027

REACTIONS (3)
  - DRUG INEFFECTIVE [None]
  - PRURITUS [None]
  - URTICARIA [None]
